FAERS Safety Report 7227303-X (Version None)
Quarter: 2011Q1

REPORT INFORMATION
  Report Type: 
  Country: None (occurrence: None)
  Receive Date: 20110114
  Receipt Date: 20110111
  Transmission Date: 20110831
  Serious: Yes (Other)
  Sender: FDA-Public Use
  Company Number: B0686877A

PATIENT
  Sex: Male

DRUGS (3)
  1. REQUIP [Suspect]
     Indication: PARKINSON'S DISEASE
     Dosage: 1MG THREE TIMES PER DAY
     Route: 048
     Dates: start: 20100801
  2. PROPRANOLOL [Concomitant]
  3. MOVICOL [Concomitant]
     Indication: IRRITABLE BOWEL SYNDROME

REACTIONS (3)
  - SUDDEN ONSET OF SLEEP [None]
  - NAUSEA [None]
  - GASTROINTESTINAL DISORDER [None]
